APPROVED DRUG PRODUCT: INDERIDE-40/25
Active Ingredient: HYDROCHLOROTHIAZIDE; PROPRANOLOL HYDROCHLORIDE
Strength: 25MG;40MG **Federal Register determination that product was not discontinued or withdrawn for safety or effectiveness reasons**
Dosage Form/Route: TABLET;ORAL
Application: N018031 | Product #001
Applicant: WYETH PHARMACEUTICALS INC
Approved: Approved Prior to Jan 1, 1982 | RLD: Yes | RS: No | Type: DISCN